FAERS Safety Report 4721456-0 (Version None)
Quarter: 2005Q3

REPORT INFORMATION
  Report Type: 
  Country: None (occurrence: None)
  Receive Date: 20050721
  Receipt Date: 20040921
  Transmission Date: 20060218
  Serious: No
  Sender: FDA-Public Use
  Company Number: US-BRISTOL-MYERS SQUIBB COMPANY-12707493

PATIENT
  Sex: Male

DRUGS (2)
  1. COUMADIN [Suspect]
  2. XELODA [Interacting]

REACTIONS (1)
  - DRUG INTERACTION [None]
